FAERS Safety Report 15329354 (Version 2)
Quarter: 2018Q4

REPORT INFORMATION
  Report Type: Spontaneous
  Country: US (occurrence: US)
  Receive Date: 20180829
  Receipt Date: 20181017
  Transmission Date: 20190204
  Serious: Yes (Other)
  Sender: FDA-Public Use
  Company Number: US-AMGEN-USASP2018117230

PATIENT
  Age: 78 Year
  Sex: Female
  Weight: 81.18 kg

DRUGS (2)
  1. REPATHA [Suspect]
     Active Substance: EVOLOCUMAB
     Indication: HYPERLIPIDAEMIA
     Dosage: 420 MG, UNK
     Route: 030
     Dates: start: 20171102
  2. REPATHA [Suspect]
     Active Substance: EVOLOCUMAB
     Indication: ESSENTIAL HYPERTENSION

REACTIONS (2)
  - Incorrect route of product administration [Unknown]
  - Breast cancer [Unknown]

NARRATIVE: CASE EVENT DATE: 20171102
